FAERS Safety Report 23231877 (Version 1)
Quarter: 2023Q4

REPORT INFORMATION
  Report Type: Report from Study
  Country: BR (occurrence: BR)
  Receive Date: 20231127
  Receipt Date: 20231127
  Transmission Date: 20240110
  Serious: Yes (Hospitalization, Other)
  Sender: FDA-Public Use
  Company Number: BR-BAYER-2023A147806

PATIENT
  Age: 63 Year
  Sex: Male

DRUGS (8)
  1. NEXAVAR [Suspect]
     Active Substance: SORAFENIB
     Indication: Hepatocellular carcinoma
     Dosage: 400 MG, QD
     Dates: start: 20231012
  2. NEXAVAR [Suspect]
     Active Substance: SORAFENIB
     Indication: Metastases to stomach
  3. DOMPERIDONE [Concomitant]
     Active Substance: DOMPERIDONE
     Indication: Gastrooesophageal reflux disease
     Dosage: TAKES 2 TABLETS A DAY BEFORE MEALS
  4. DOMPERIDONE [Concomitant]
     Active Substance: DOMPERIDONE
     Indication: Gastrooesophageal reflux disease
     Dosage: TAKE 3 TABLETS A DAY BEFORE MEALS
  5. OMEPRAZOLE [Concomitant]
     Active Substance: OMEPRAZOLE
     Indication: Gastrooesophageal reflux disease
     Dosage: TAKES 2 TABLETS A DAY
  6. CARVEDILOL [Concomitant]
     Active Substance: CARVEDILOL
     Indication: Blood pressure abnormal
     Dosage: TAKES 1 TABLET EVERY 12 HOURS
  7. CHLORPROMAZINE HYDROCHLORIDE [Concomitant]
     Active Substance: CHLORPROMAZINE HYDROCHLORIDE
     Indication: Insomnia
     Dosage: TAKES IT ONCE A DAY, BUT DIDN^T TAKE IT YESTERDAY. IN FACT, ONLY TOOK IT TWICE.
  8. DIMETHICONE [Concomitant]
     Active Substance: DIMETHICONE
     Indication: Flatulence
     Dosage: UNK

REACTIONS (14)
  - Diarrhoea [Not Recovered/Not Resolved]
  - Dehydration [Not Recovered/Not Resolved]
  - Aspiration pleural cavity [None]
  - Vomiting [Not Recovered/Not Resolved]
  - Asthenia [Not Recovered/Not Resolved]
  - Nausea [Not Recovered/Not Resolved]
  - Pruritus [Recovering/Resolving]
  - Abdominal distension [Not Recovered/Not Resolved]
  - Peripheral swelling [Not Recovered/Not Resolved]
  - Decreased appetite [Not Recovered/Not Resolved]
  - Malaise [None]
  - Food refusal [None]
  - Cough [None]
  - Off label use [None]

NARRATIVE: CASE EVENT DATE: 20231012
